FAERS Safety Report 7634566-5 (Version None)
Quarter: 2011Q3

REPORT INFORMATION
  Report Type: 
  Country: None (occurrence: None)
  Receive Date: 20110725
  Receipt Date: 20110718
  Transmission Date: 20111222
  Serious: Yes (Other)
  Sender: FDA-Public Use
  Company Number: CA-PFIZER INC-2011145345

PATIENT
  Age: 71 Year
  Sex: Male
  Weight: 73 kg

DRUGS (6)
  1. XALATAN [Suspect]
     Indication: INTRAOCULAR PRESSURE INCREASED
  2. ZOPICLONE [Concomitant]
     Indication: SLEEP DISORDER
     Dosage: 1.5 MG, 1X/DAY
     Dates: start: 20000101
  3. VIREAD [Concomitant]
     Indication: HEPATITIS B
     Dosage: 300 MG, 1X/DAY
     Dates: start: 20110629
  4. METOPROLOL [Concomitant]
     Indication: ATRIAL FIBRILLATION
     Dosage: 50 MG, 2X/DAY
     Dates: start: 20080101
  5. WARFARIN [Concomitant]
     Indication: CARDIOVASCULAR EVENT PROPHYLAXIS
     Dosage: 6 MG, 1X/DAY
     Dates: start: 20080101
  6. XALATAN [Suspect]
     Indication: GLAUCOMA
     Dosage: 1 GTT, 1X/DAY IN BOTH EYES
     Route: 047
     Dates: start: 20110625

REACTIONS (5)
  - DRY EYE [None]
  - HEADACHE [None]
  - FOREIGN BODY SENSATION IN EYES [None]
  - INTRAOCULAR PRESSURE INCREASED [None]
  - PAIN [None]
